FAERS Safety Report 9314410 (Version 1)
Quarter: 2013Q2

REPORT INFORMATION
  Report Type: Spontaneous
  Country: US (occurrence: US)
  Receive Date: 20130529
  Receipt Date: 20130529
  Transmission Date: 20140414
  Serious: No
  Sender: FDA-Public Use
  Company Number: US-PFIZER INC-2013162340

PATIENT
  Sex: 0

DRUGS (1)
  1. LYRICA [Suspect]
     Dosage: UNK

REACTIONS (11)
  - Swelling face [Unknown]
  - Oedema mouth [Unknown]
  - Swollen tongue [Unknown]
  - Skin disorder [Unknown]
  - Vision blurred [Unknown]
  - Myalgia [Unknown]
  - Pyrexia [Unknown]
  - Fatigue [Unknown]
  - Dizziness [Unknown]
  - Somnolence [Unknown]
  - Therapeutic response unexpected [Unknown]
